FAERS Safety Report 9880649 (Version 2)
Quarter: 2014Q2

REPORT INFORMATION
  Report Type: Spontaneous
  Country: GB (occurrence: None)
  Receive Date: 20140205
  Receipt Date: 20140402
  Transmission Date: 20141212
  Serious: Yes (Hospitalization, Other)
  Sender: FDA-Public Use
  Company Number: FK201400351

PATIENT
  Age: 47 Year
  Sex: Female
  Weight: 55 kg

DRUGS (4)
  1. EPIRUBICIN [Suspect]
     Indication: INVASIVE DUCTAL BREAST CARCINOMA
     Dosage: 1 IN 1 D NOT OTHERWISE SPECIFIED
     Route: 042
     Dates: start: 20131231
  2. CYCLOPHOSPHAMIDE (CYCLOPHOSPHAMIDE) [Suspect]
     Indication: INVASIVE DUCTAL BREAST CARCINOMA
     Dosage: 1 IN 1 D, NOT OTHERWISE SPECIFIED
     Route: 042
     Dates: start: 20131231
  3. FLUOROURACIL (FLUOROURACIL) (FLUOROURACIL) [Suspect]
     Indication: INVASIVE DUCTAL BREAST CARCINOMA
     Dosage: 1 IN 1 D NOT OTHERWISE SPECIFIED
     Route: 042
     Dates: start: 20131231
  4. NEULASTA [Suspect]
     Indication: PROPHYLAXIS
     Route: 058
     Dates: start: 20140101

REACTIONS (11)
  - Carotid artery occlusion [None]
  - Somnolence [None]
  - Hemianopia homonymous [None]
  - Hemiparesis [None]
  - Cerebral infarction [None]
  - Respiratory failure [None]
  - Lower respiratory tract infection [None]
  - Gastrointestinal disorder [None]
  - Haemoglobin decreased [None]
  - Neutrophil count abnormal [None]
  - White blood cell count abnormal [None]
